FAERS Safety Report 7074674-3 (Version None)
Quarter: 2010Q4

REPORT INFORMATION
  Report Type: 
  Country: None (occurrence: None)
  Receive Date: 20101029
  Receipt Date: 20101027
  Transmission Date: 20110411
  Serious: Yes (Hospitalization)
  Sender: FDA-Public Use
  Company Number: B0681445A

PATIENT
  Sex: Female

DRUGS (3)
  1. AUGMENTIN '125' [Suspect]
     Route: 048
     Dates: start: 20101005, end: 20101007
  2. ROCEPHIN [Suspect]
     Dosage: 2G PER DAY
     Route: 042
     Dates: end: 20101004
  3. FLAGYL [Suspect]
     Dosage: 500MG THREE TIMES PER DAY
     Route: 042
     Dates: end: 20101004

REACTIONS (5)
  - LEUKOCYTOSIS [None]
  - NEUTROPHIL COUNT INCREASED [None]
  - RASH [None]
  - SKIN EXFOLIATION [None]
  - TOXIC SKIN ERUPTION [None]
